FAERS Safety Report 25792613 (Version 1)
Quarter: 2025Q3

REPORT INFORMATION
  Report Type: Spontaneous
  Country: US (occurrence: US)
  Receive Date: 20250911
  Receipt Date: 20250911
  Transmission Date: 20251021
  Serious: Yes (Other)
  Sender: AMGEN
  Company Number: US-AMGEN-USASP2025129937

PATIENT
  Age: 59 Year
  Sex: Male

DRUGS (5)
  1. APREMILAST [Suspect]
     Active Substance: APREMILAST
     Indication: Psoriatic arthropathy
     Route: 065
  2. APREMILAST [Suspect]
     Active Substance: APREMILAST
     Indication: Psoriasis
  3. PREDNISONE [Suspect]
     Active Substance: PREDNISONE
     Indication: Product used for unknown indication
     Route: 065
  4. NIVOLUMAB [Concomitant]
     Active Substance: NIVOLUMAB
     Indication: Malignant melanoma
  5. NELVUTAMIG [Concomitant]
     Active Substance: NELVUTAMIG
     Indication: Malignant melanoma

REACTIONS (3)
  - Malignant melanoma stage IV [Unknown]
  - Therapy partial responder [Unknown]
  - Drug intolerance [Unknown]
